FAERS Safety Report 5686321-3 (Version None)
Quarter: 2008Q1

REPORT INFORMATION
  Report Type: 
  Country: None (occurrence: None)
  Receive Date: 20080328
  Receipt Date: 20070508
  Transmission Date: 20080703
  Serious: No
  Sender: FDA-Public Use
  Company Number: US-BAYER-US-2007-025888

PATIENT
  Age: 44 Year
  Sex: Female
  Weight: 58 kg

DRUGS (2)
  1. MIRENA [Suspect]
     Indication: MENORRHAGIA
     Dates: start: 20070202, end: 20070202
  2. AYGESTIN [Concomitant]

REACTIONS (4)
  - ABDOMINAL PAIN [None]
  - BLOOD PRESSURE DECREASED [None]
  - PROCEDURAL NAUSEA [None]
  - VOMITING [None]
